FAERS Safety Report 9687189 (Version 1)
Quarter: 2013Q4

REPORT INFORMATION
  Report Type: Spontaneous
  Country: DE (occurrence: DE)
  Receive Date: 20131113
  Receipt Date: 20131113
  Transmission Date: 20140711
  Serious: Yes (Hospitalization, Congenital Anomaly, Other)
  Sender: FDA-Public Use
  Company Number: DE-MYLANLABS-2013S1024546

PATIENT
  Sex: Male
  Weight: 2.86 kg

DRUGS (4)
  1. LEVETIRACETAM [Suspect]
     Route: 064
  2. LAMOTRIGINE [Suspect]
     Dosage: 400 [(200-0-200) MG/D ]
     Route: 064
  3. SUFENTANIL [Concomitant]
     Route: 064
     Dates: start: 20081020, end: 20081020
  4. ROPIVACAINE [Concomitant]
     Route: 064

REACTIONS (7)
  - Patent ductus arteriosus [Recovered/Resolved]
  - Exposure during pregnancy [Recovered/Resolved]
  - Agitation neonatal [Recovered/Resolved]
  - Portal vein thrombosis [Recovered/Resolved]
  - Apnoea neonatal [Recovered/Resolved]
  - Feeding disorder neonatal [Recovered/Resolved]
  - Pneumonia [Recovered/Resolved]
